FAERS Safety Report 6146646-4 (Version None)
Quarter: 2009Q2

REPORT INFORMATION
  Report Type: 
  Country: None (occurrence: None)
  Receive Date: 20090403
  Receipt Date: 20090403
  Transmission Date: 20091009
  Serious: No
  Sender: FDA-Public Use
  Company Number: None

PATIENT
  Age: 52 Year
  Sex: Male
  Weight: 103 kg

DRUGS (1)
  1. TRAZODONE [Suspect]
     Dosage: 100 MG HS PO
     Route: 048
     Dates: start: 20090331, end: 20090401

REACTIONS (1)
  - PRIAPISM [None]
